FAERS Safety Report 5291840-8 (Version None)
Quarter: 2007Q2

REPORT INFORMATION
  Report Type: 
  Country: None (occurrence: None)
  Receive Date: 20070410
  Receipt Date: 20070327
  Transmission Date: 20071010
  Serious: Yes (Hospitalization)
  Sender: FDA-Public Use
  Company Number: CA-ELI_LILLY_AND_COMPANY-CA200703006517

PATIENT
  Age: 75 Year
  Sex: Female

DRUGS (9)
  1. FORTEO [Suspect]
     Indication: OSTEOPOROSIS
     Dosage: 20 UG, DAILY (1/D)
     Route: 058
     Dates: start: 20070130, end: 20070315
  2. GABAPENTIN [Concomitant]
  3. METOPROLOL SUCCINATE [Concomitant]
  4. PLAVIX [Concomitant]
  5. EFFEXOR [Concomitant]
  6. LIPITOR [Concomitant]
  7. METFORMIN HCL [Concomitant]
  8. ALTACE [Concomitant]
  9. BUPROPION HCL [Concomitant]

REACTIONS (3)
  - BACK INJURY [None]
  - DIZZINESS [None]
  - FALL [None]
